FAERS Safety Report 6448730-4 (Version None)
Quarter: 2009Q4

REPORT INFORMATION
  Report Type: 
  Country: None (occurrence: None)
  Receive Date: 20091120
  Receipt Date: 20090819
  Transmission Date: 20100525
  Serious: No
  Sender: FDA-Public Use
  Company Number: US-KINGPHARMUSA00001-K200901024

PATIENT
  Age: 73 Year
  Sex: Female
  Weight: 48.98 kg

DRUGS (8)
  1. FLECTOR [Suspect]
     Indication: OSTEOARTHRITIS
     Dosage: 0.5 PATCH, BID
     Route: 061
     Dates: start: 20090801
  2. FLECTOR [Suspect]
     Indication: OSTEOPOROSIS
  3. FLECTOR [Suspect]
     Indication: BURSITIS
  4. AMLODIPINE BESYLATE [Concomitant]
     Indication: HYPERTENSION
     Dosage: 10 MG, QD
     Route: 048
     Dates: start: 20080101
  5. METHYLSULFONYLMETHANE [Concomitant]
     Indication: ARTHROPATHY
     Dosage: UNK
     Route: 048
  6. CALTRATE [Concomitant]
     Dosage: UNK
     Route: 048
  7. BABY ASPIRIN [Concomitant]
     Dosage: 81 MG, QD
     Route: 048
  8. LOVAZA [Concomitant]
     Dosage: UNK
     Route: 048

REACTIONS (1)
  - RASH [None]
